FAERS Safety Report 9215993 (Version 2)
Quarter: 2013Q2

REPORT INFORMATION
  Report Type: Spontaneous
  Country: US (occurrence: None)
  Receive Date: 20130402
  Receipt Date: 20130412
  Transmission Date: 20140414
  Serious: Yes (Other)
  Sender: FDA-Public Use
  Company Number: 2013P1003912

PATIENT
  Age: 30 Year
  Sex: Female

DRUGS (3)
  1. INFUMORPH [Suspect]
     Indication: INTERVERTEBRAL DISC DEGENERATION
     Route: 037
  2. INFUMORPH [Suspect]
     Indication: PAIN
     Route: 037
  3. INFUMORPH [Suspect]
     Indication: PANCREATITIS
     Route: 037

REACTIONS (3)
  - Discomfort [None]
  - Device deployment issue [None]
  - Patient-device incompatibility [None]
